FAERS Safety Report 19270082 (Version 2)
Quarter: 2021Q2

REPORT INFORMATION
  Report Type: Report from Study
  Country: GB (occurrence: GB)
  Receive Date: 20210518
  Receipt Date: 20210618
  Transmission Date: 20210717
  Serious: Yes (Other)
  Sender: FDA-Public Use
  Company Number: GB-SAMSUNG BIOEPIS-SB-2021-11811

PATIENT
  Sex: Female

DRUGS (1)
  1. IMRALDI [Suspect]
     Active Substance: ADALIMUMAB
     Indication: AXIAL SPONDYLOARTHRITIS
     Route: 058
     Dates: start: 202002

REACTIONS (5)
  - Angioedema [Unknown]
  - Axial spondyloarthritis [Unknown]
  - Hypersensitivity [Unknown]
  - Cellulitis [Recovered/Resolved]
  - Seasonal allergy [Unknown]
